FAERS Safety Report 23271978 (Version 1)
Quarter: 2023Q4

REPORT INFORMATION
  Report Type: Spontaneous
  Country: CA (occurrence: CA)
  Receive Date: 20231207
  Receipt Date: 20231207
  Transmission Date: 20240109
  Serious: Yes (Other)
  Sender: FDA-Public Use
  Company Number: CA-CURIUM-2023000963

PATIENT

DRUGS (2)
  1. TECHNETIUM TC-99M SESTAMIBI [Suspect]
     Active Substance: TECHNETIUM TC-99M SESTAMIBI
     Indication: Product used for unknown indication
     Route: 064
  2. TECHNETIUM TC-99M SODIUM PERTECHNETATE [Suspect]
     Active Substance: TECHNETIUM TC-99M SODIUM PERTECHNETATE
     Indication: Product used for unknown indication
     Route: 064

REACTIONS (3)
  - Foetal heart rate deceleration abnormality [Unknown]
  - Placental insufficiency [Unknown]
  - Premature baby [Unknown]
